FAERS Safety Report 5144480-5 (Version None)
Quarter: 2006Q4

REPORT INFORMATION
  Report Type: 
  Country: None (occurrence: None)
  Receive Date: 20061106
  Receipt Date: 20061031
  Transmission Date: 20070319
  Serious: Yes (Other)
  Sender: FDA-Public Use
  Company Number: LB-ROXANE LABORATORIES, INC-2006-BP-12723RO

PATIENT
  Age: 44 Year
  Sex: Female

DRUGS (1)
  1. TAMOXIFEN CITRATE [Suspect]
     Indication: CHEMOTHERAPY

REACTIONS (6)
  - ABDOMINAL DISTENSION [None]
  - BACK PAIN [None]
  - DYSPEPSIA [None]
  - HYDRONEPHROSIS [None]
  - LEIOMYOMA [None]
  - NEPHROLITHIASIS [None]
